FAERS Safety Report 6235190-1 (Version None)
Quarter: 2009Q2

REPORT INFORMATION
  Report Type: 
  Country: None (occurrence: None)
  Receive Date: 20090615
  Receipt Date: 20090608
  Transmission Date: 20091009
  Serious: Yes (Hospitalization, Other)
  Sender: FDA-Public Use
  Company Number: ADR2702009

PATIENT
  Sex: Male

DRUGS (4)
  1. AMLODIPINE [Suspect]
  2. RAMIPRIL [Suspect]
  3. HYDROCHLOROTHIAZIDE [Concomitant]
  4. METOPROLOL SUCCINATE [Concomitant]

REACTIONS (1)
  - HAEMOLYTIC ANAEMIA [None]
